FAERS Safety Report 12536833 (Version 1)
Quarter: 2016Q3

REPORT INFORMATION
  Report Type: Report from Study
  Country: JP (occurrence: JP)
  Receive Date: 20160707
  Receipt Date: 20160707
  Transmission Date: 20161109
  Serious: Yes (Other)
  Sender: FDA-Public Use
  Company Number: JP-SA-2016SA123533

PATIENT
  Age: 70 Year
  Sex: Male
  Weight: 58 kg

DRUGS (17)
  1. ATARAX-P [Concomitant]
     Active Substance: HYDROXYZINE HYDROCHLORIDE
     Dosage: PARENTERAL SOLUTION
     Dates: start: 20130428, end: 20130428
  2. PRIMPERAN [Concomitant]
     Active Substance: METOCLOPRAMIDE HYDROCHLORIDE
     Dates: start: 20130428, end: 20130428
  3. TSUMURA BAKUMONDOTO [Concomitant]
     Dates: start: 20130530, end: 20130606
  4. TRAVELMIN [Concomitant]
     Active Substance: DIMENHYDRINATE
     Dates: start: 20140303, end: 20140328
  5. NORVASC [Concomitant]
     Active Substance: AMLODIPINE BESYLATE
     Dates: start: 20120910
  6. ADETPHOS [Concomitant]
     Active Substance: ADENOSINE TRIPHOSPHATE
     Dates: start: 20130502, end: 20140103
  7. ALLEGRA [Concomitant]
     Active Substance: FEXOFENADINE HYDROCHLORIDE
     Dates: start: 20140303, end: 20140317
  8. PLAVIX [Suspect]
     Active Substance: CLOPIDOGREL BISULFATE
     Indication: ARTERIAL OCCLUSIVE DISEASE
     Route: 065
     Dates: end: 20120521
  9. TAKEPRON [Concomitant]
     Active Substance: LANSOPRAZOLE
  10. TRAVELMIN [Concomitant]
     Active Substance: DIMENHYDRINATE
     Dates: start: 20130617, end: 20140103
  11. NORVASC [Concomitant]
     Active Substance: AMLODIPINE BESYLATE
     Dates: end: 20120803
  12. PLAVIX [Suspect]
     Active Substance: CLOPIDOGREL BISULFATE
     Indication: ARTERIAL OCCLUSIVE DISEASE
     Route: 065
     Dates: start: 20120522, end: 20140414
  13. DEPAS [Concomitant]
     Active Substance: ETIZOLAM
     Dates: end: 20120803
  14. MEDICON [Concomitant]
     Active Substance: DEXTROMETHORPHAN HYDROBROMIDE
     Dates: start: 20130530, end: 20130606
  15. SENNOSIDE [Concomitant]
     Active Substance: SENNOSIDES
  16. LENDORMIN [Concomitant]
     Active Substance: BROTIZOLAM
  17. METHYCOBAL [Concomitant]
     Active Substance: METHYLCOBALAMIN
     Dates: start: 20130502, end: 20140103

REACTIONS (3)
  - Prostate cancer [Not Recovered/Not Resolved]
  - Myalgia [Recovered/Resolved]
  - Bladder cancer stage 0, with cancer in situ [Not Recovered/Not Resolved]

NARRATIVE: CASE EVENT DATE: 20120703
